FAERS Safety Report 20057297 (Version 1)
Quarter: 2021Q4

REPORT INFORMATION
  Report Type: Report from Study
  Country: US (occurrence: US)
  Receive Date: 20211111
  Receipt Date: 20211111
  Transmission Date: 20220303
  Serious: Yes (Hospitalization)
  Sender: FDA-Public Use
  Company Number: US-AMGEN-USACT2021173103

PATIENT
  Age: 77 Year
  Sex: Male
  Weight: 81.8 kg

DRUGS (3)
  1. BLINATUMOMAB [Suspect]
     Active Substance: BLINATUMOMAB
     Indication: B precursor type acute leukaemia
     Dosage: TOTAL DOSE ADMINISTAERED: 280 MCG
     Route: 042
     Dates: start: 20201228
  2. INOTUZUMAB OZOGAMICIN [Suspect]
     Active Substance: INOTUZUMAB OZOGAMICIN
     Indication: B precursor type acute leukaemia
     Dosage: UNK
     Route: 042
     Dates: start: 20201027
  3. METHOTREXATE [Suspect]
     Active Substance: METHOTREXATE
     Indication: B precursor type acute leukaemia
     Dosage: UNK
     Route: 037
     Dates: start: 20201120

REACTIONS (3)
  - Gait disturbance [Recovered/Resolved]
  - Confusional state [Recovered/Resolved]
  - Tremor [Not Recovered/Not Resolved]

NARRATIVE: CASE EVENT DATE: 20210331
